FAERS Safety Report 8490281-X (Version None)
Quarter: 2012Q3

REPORT INFORMATION
  Report Type: 
  Country: None (occurrence: None)
  Receive Date: 20120705
  Receipt Date: 20120419
  Transmission Date: 20120928
  Serious: No
  Sender: FDA-Public Use
  Company Number: US-BAUSCH-2012BL002726

PATIENT
  Age: 34 Year
  Sex: Female

DRUGS (6)
  1. OPCON-A [Suspect]
     Indication: HYPERSENSITIVITY
     Route: 047
     Dates: start: 20120414, end: 20120414
  2. VITAMIN TAB [Concomitant]
  3. LORATADINE [Concomitant]
  4. FLOVENT [Concomitant]
  5. OPCON-A [Suspect]
     Indication: DRY EYE
     Route: 047
     Dates: start: 20120414, end: 20120414
  6. OPCON-A [Suspect]
     Indication: OFF LABEL USE
     Route: 047
     Dates: start: 20120414, end: 20120414

REACTIONS (3)
  - MYDRIASIS [None]
  - DRUG INEFFECTIVE FOR UNAPPROVED INDICATION [None]
  - DRUG INEFFECTIVE [None]
